FAERS Safety Report 18782677 (Version 1)
Quarter: 2021Q1

REPORT INFORMATION
  Report Type: Spontaneous
  Country: FR (occurrence: FR)
  Receive Date: 20210125
  Receipt Date: 20210125
  Transmission Date: 20210419
  Serious: Yes (Hospitalization)
  Sender: FDA-Public Use
  Company Number: FR-TEVA-2021-FR-1871029

PATIENT
  Age: 88 Year
  Sex: Female
  Weight: 46.5 kg

DRUGS (17)
  1. PANTOPRAZOLE [Concomitant]
     Active Substance: PANTOPRAZOLE
     Dosage: 20 MG
     Route: 048
     Dates: start: 2013, end: 20201208
  2. DIFFU K, GELULE [Concomitant]
     Active Substance: POTASSIUM CHLORIDE
     Dosage: 6 DOSAGE FORMS
     Route: 048
  3. FUNGIZONE [Concomitant]
     Active Substance: AMPHOTERICIN B
     Dosage: 2X/J
     Route: 048
  4. MABTHERA [Concomitant]
     Active Substance: RITUXIMAB
     Dosage: J1 FROM C1, 500 MG
     Route: 041
     Dates: start: 20201203, end: 20201203
  5. LARGACTIL [Concomitant]
     Active Substance: CHLORPROMAZINE
     Route: 048
  6. EZETIMIBE. [Concomitant]
     Active Substance: EZETIMIBE
     Dosage: 1 DOSAGE FORMS
     Route: 048
     Dates: start: 2014, end: 20201208
  7. ATENOLOL. [Concomitant]
     Active Substance: ATENOLOL
     Dosage: 1 DOSAGE FORMS
     Route: 048
  8. METHOTREXATE. [Suspect]
     Active Substance: METHOTREXATE
     Indication: CENTRAL NERVOUS SYSTEM LYMPHOMA
     Dosage: OVER TWO HOURS. J1 FROM C1., 3.5 GRAM
     Route: 042
     Dates: start: 20201203, end: 20201203
  9. LOVENOX [Concomitant]
     Active Substance: ENOXAPARIN SODIUM
     Dosage: 4000 IU
     Route: 058
  10. SETOFILM 8 MG, FILM ORODISPERSIBLE [Concomitant]
     Active Substance: ONDANSETRON
     Dosage: 1 DOSAGE FORMS
     Route: 048
     Dates: start: 20201203, end: 20201207
  11. LEVOTHYROX [Concomitant]
     Active Substance: LEVOTHYROXINE
     Dosage: 75 MICROGRAM  ODD DAYS, 88 MICROGRAM EVEN DAYS
     Route: 048
  12. SOLUPRED 20 MG, COMPRIME ORODISPERSIBLE [Concomitant]
     Active Substance: PREDNISOLONE SODIUM METAZOATE
     Dosage: 40 MG
     Route: 048
     Dates: start: 20201205, end: 20201211
  13. METHYLPREDNISOLONE. [Concomitant]
     Active Substance: METHYLPREDNISOLONE
     Dosage: 240 MG ON 12/03 THEN 60 MG UNTIL 12/06/20
     Route: 042
     Dates: start: 20201203, end: 20201206
  14. NATULAN [Concomitant]
     Active Substance: PROCARBAZINE HYDROCHLORIDE
     Dosage: FROM J1 TO J7 OF C1. 100 MG / M , 151 MG
     Route: 048
     Dates: start: 20201203, end: 20201209
  15. ALDACTAZINE [Concomitant]
     Active Substance: ALTHIAZIDE\SPIRONOLACTONE
     Dosage: 1 DOSAGE  FORMS
     Route: 048
  16. GAVISCON [Concomitant]
     Active Substance: ALUMINUM HYDROXIDE\MAGNESIUM CARBONATE
     Dosage: 1 DOSAGE FORMS
     Route: 048
  17. DOLIPRANE [Concomitant]
     Active Substance: ACETAMINOPHEN
     Dosage: 1 DOSAGE FORMS
     Route: 048
     Dates: start: 20201206, end: 20201208

REACTIONS (2)
  - Hepatocellular injury [Recovered/Resolved]
  - Drug level increased [Recovering/Resolving]

NARRATIVE: CASE EVENT DATE: 20201205
